FAERS Safety Report 13387865 (Version 2)
Quarter: 2018Q1

REPORT INFORMATION
  Report Type: Spontaneous
  Country: CH (occurrence: CH)
  Receive Date: 20170330
  Receipt Date: 20180220
  Transmission Date: 20180508
  Serious: Yes (Other)
  Sender: FDA-Public Use
  Company Number: CH-ABBVIE-17P-151-1928345-00

PATIENT
  Age: 55 Year
  Sex: Male
  Weight: 80 kg

DRUGS (6)
  1. TESTOSTERONE UNDECANOATE [Concomitant]
     Active Substance: TESTOSTERONE UNDECANOATE
     Indication: HYPOGONADISM
     Route: 030
  2. TESTOSTERONE. [Suspect]
     Active Substance: TESTOSTERONE
     Indication: HYPOGONADISM
     Route: 065
  3. LOSARTAN POTASSIUM. [Concomitant]
     Active Substance: LOSARTAN POTASSIUM
     Indication: PRODUCT USED FOR UNKNOWN INDICATION
  4. CLOPIDOGREL [Concomitant]
     Active Substance: CLOPIDOGREL BISULFATE
     Indication: PRODUCT USED FOR UNKNOWN INDICATION
  5. TESTOSTERONE UNDECANOATE [Concomitant]
     Active Substance: TESTOSTERONE UNDECANOATE
     Route: 030
  6. SARTAN (LOSARTAN POTASSIUM) [Concomitant]
     Indication: BLOOD PRESSURE MANAGEMENT

REACTIONS (9)
  - Abdominal pain [Recovered/Resolved]
  - Night sweats [Unknown]
  - Hypervolaemia [Unknown]
  - Malaise [Unknown]
  - Tinnitus [Unknown]
  - Hypertension [Recovered/Resolved]
  - Polycythaemia [Recovered/Resolved]
  - Vomiting [Unknown]
  - Overdose [Unknown]
